FAERS Safety Report 19711555 (Version 1)
Quarter: 2021Q3

REPORT INFORMATION
  Report Type: Spontaneous
  Country: CA (occurrence: CA)
  Receive Date: 20210816
  Receipt Date: 20210816
  Transmission Date: 20211014
  Serious: Yes (Death)
  Sender: FDA-Public Use
  Company Number: CA-PFIZER INC-2019388895

PATIENT
  Age: 66 Year
  Sex: Female
  Weight: 91.61 kg

DRUGS (18)
  1. FORTEO [Concomitant]
     Active Substance: TERIPARATIDE
  2. CHOLECALCIFEROL [Concomitant]
     Active Substance: CHOLECALCIFEROL
  3. MIRAPEX [Concomitant]
     Active Substance: PRAMIPEXOLE DIHYDROCHLORIDE
  4. MAXERAN [Concomitant]
     Active Substance: METOCLOPRAMIDE HYDROCHLORIDE
  5. SERTRALINE [Concomitant]
     Active Substance: SERTRALINE HYDROCHLORIDE
  6. ONDANSETRON [Concomitant]
     Active Substance: ONDANSETRON
  7. CARIPUL [Concomitant]
     Active Substance: EPOPROSTENOL
  8. MACITENTAN [Concomitant]
     Active Substance: MACITENTAN
  9. ACTONEL [Concomitant]
     Active Substance: RISEDRONATE SODIUM
  10. REVATIO [Suspect]
     Active Substance: SILDENAFIL CITRATE
     Indication: PULMONARY ARTERIAL HYPERTENSION
     Dosage: UNK
  11. LIPITOR [Concomitant]
     Active Substance: ATORVASTATIN CALCIUM
  12. EZETROL [Concomitant]
     Active Substance: EZETIMIBE
  13. LASIX [Concomitant]
     Active Substance: FUROSEMIDE
  14. PLAQUENIL [Concomitant]
     Active Substance: HYDROXYCHLOROQUINE SULFATE
  15. WARFARIN [Concomitant]
     Active Substance: WARFARIN
  16. IMODIUM [Concomitant]
     Active Substance: LOPERAMIDE HYDROCHLORIDE
  17. PANTOLOC [PANTOPRAZOLE] [Concomitant]
     Active Substance: PANTOPRAZOLE SODIUM
  18. OPSUMIT [Concomitant]
     Active Substance: MACITENTAN

REACTIONS (1)
  - Death [Fatal]

NARRATIVE: CASE EVENT DATE: 20210807
